FAERS Safety Report 7638787-7 (Version None)
Quarter: 2011Q3

REPORT INFORMATION
  Report Type: 
  Country: None (occurrence: None)
  Receive Date: 20110727
  Receipt Date: 20110713
  Transmission Date: 20111222
  Serious: Yes (Death)
  Sender: FDA-Public Use
  Company Number: AU-ROCHE-790947

PATIENT
  Age: 35 Year

DRUGS (6)
  1. CODEINE SULFATE [Suspect]
     Route: 065
  2. FLUOXETINE HYDROCHLORIDE [Suspect]
     Route: 065
  3. METHADONE HYDROCHLORIDE [Suspect]
     Route: 065
  4. DIAZEPAM [Suspect]
     Route: 065
  5. BENZTROPINE MESYLATE [Suspect]
     Route: 065
  6. QUETIAPINE [Suspect]
     Route: 065

REACTIONS (3)
  - OVERDOSE [None]
  - RESPIRATORY DEPRESSION [None]
  - ACCIDENTAL POISONING [None]
